FAERS Safety Report 12131093 (Version 2)
Quarter: 2016Q2

REPORT INFORMATION
  Report Type: Spontaneous
  Country: US (occurrence: US)
  Receive Date: 20160301
  Receipt Date: 20160526
  Transmission Date: 20160815
  Serious: Yes (Other)
  Sender: FDA-Public Use
  Company Number: US-PFIZER INC-2016121486

PATIENT
  Age: 49 Year
  Sex: Female
  Weight: 86 kg

DRUGS (4)
  1. GABAPENTIN. [Suspect]
     Active Substance: GABAPENTIN
     Indication: NEUROPATHY PERIPHERAL
     Dosage: 300 MG, DAILY (6-9 TABLETS)
     Dates: start: 201401
  2. GABAPENTIN. [Suspect]
     Active Substance: GABAPENTIN
     Dosage: 9 DF
     Dates: start: 201507, end: 201601
  3. CENTRUM FOR WOMEN [Concomitant]
     Active Substance: VITAMINS
     Dosage: 1 DF, DAILY
  4. GABAPENTIN. [Suspect]
     Active Substance: GABAPENTIN
     Dosage: 3 DF, 2X/DAY (300 MG, 3 CAPSULES IN THE MORNING AND 3 IN THE EVENING)
     Dates: start: 201503, end: 201507

REACTIONS (6)
  - Discomfort [Not Recovered/Not Resolved]
  - Product use issue [Not Recovered/Not Resolved]
  - Diarrhoea [Not Recovered/Not Resolved]
  - Weight increased [Not Recovered/Not Resolved]
  - Abdominal discomfort [Not Recovered/Not Resolved]
  - Nausea [Not Recovered/Not Resolved]

NARRATIVE: CASE EVENT DATE: 201401
